FAERS Safety Report 6880913-1 (Version None)
Quarter: 2010Q3

REPORT INFORMATION
  Report Type: 
  Country: None (occurrence: None)
  Receive Date: 20100728
  Receipt Date: 20100715
  Transmission Date: 20110219
  Serious: Yes (Death)
  Sender: FDA-Public Use
  Company Number: FR-GENENTECH-304348

PATIENT
  Age: 80 Year
  Sex: Male

DRUGS (2)
  1. MABTHERA [Suspect]
     Indication: RHEUMATOID ARTHRITIS
     Dosage: UNK
     Route: 042
  2. ACLASTA [Concomitant]
     Indication: OSTEOPOROSIS
     Dosage: UNK
     Route: 042

REACTIONS (1)
  - AORTIC ANEURYSM RUPTURE [None]
